FAERS Safety Report 16052825 (Version 1)
Quarter: 2019Q1

REPORT INFORMATION
  Report Type: Spontaneous
  Country: CA (occurrence: CA)
  Receive Date: 20190308
  Receipt Date: 20190308
  Transmission Date: 20190418
  Serious: Yes (Hospitalization, Other)
  Sender: FDA-Public Use
  Company Number: CA-ASTRAZENECA-2019SE35748

PATIENT
  Age: 44 Year
  Sex: Male
  Weight: 122 kg

DRUGS (14)
  1. NORVASC [Concomitant]
     Active Substance: AMLODIPINE BESYLATE
  2. CALCIUM [Concomitant]
     Active Substance: CALCIUM
  3. CRESTOR [Concomitant]
     Active Substance: ROSUVASTATIN CALCIUM
  4. REACTINE [CETIRIZINE HYDROCHLORIDE] [Concomitant]
     Active Substance: CETIRIZINE HYDROCHLORIDE
  5. FORXIGA [Suspect]
     Active Substance: DAPAGLIFLOZIN
     Indication: TYPE 2 DIABETES MELLITUS
     Route: 048
  6. ASA [Concomitant]
     Active Substance: ASPIRIN
  7. ATENOLOL. [Concomitant]
     Active Substance: ATENOLOL
  8. RAMIPRIL. [Concomitant]
     Active Substance: RAMIPRIL
  9. VITAMIN D [Concomitant]
     Active Substance: CHOLECALCIFEROL
  10. TRULICITY [Concomitant]
     Active Substance: DULAGLUTIDE
  11. HUMALOG [Concomitant]
     Active Substance: INSULIN LISPRO
  12. LIPIDIL [Concomitant]
     Active Substance: FENOFIBRATE
  13. METFORMIN [Concomitant]
     Active Substance: METFORMIN HYDROCHLORIDE
  14. TOUJEO [Concomitant]
     Active Substance: INSULIN GLARGINE

REACTIONS (3)
  - Circumcision [Recovering/Resolving]
  - Fournier^s gangrene [Recovering/Resolving]
  - Balanoposthitis [Recovering/Resolving]
